FAERS Safety Report 18648272 (Version 1)
Quarter: 2020Q4

REPORT INFORMATION
  Report Type: Spontaneous
  Country: US (occurrence: US)
  Receive Date: 20201222
  Receipt Date: 20201222
  Transmission Date: 20210114
  Serious: Yes (Other)
  Sender: FDA-Public Use
  Company Number: US-SA-2020SA360807

PATIENT

DRUGS (5)
  1. PREDNISONE. [Concomitant]
     Active Substance: PREDNISONE
     Dosage: UNK
     Route: 065
  2. ADMELOG [Suspect]
     Active Substance: INSULIN LISPRO
     Dosage: SHE IS BACK TO HER TYPICAL DAILY TOTAL OF { 20 UNITS DAILY
     Route: 030
  3. ADMELOG [Suspect]
     Active Substance: INSULIN LISPRO
     Indication: TYPE 1 DIABETES MELLITUS
     Dosage: 10 UNITS OF ADMELOG EVERY HOUR
     Route: 030
     Dates: start: 202009, end: 20201215
  4. ADMELOG [Suspect]
     Active Substance: INSULIN LISPRO
     Dosage: OVER THE COURSE OF 8 HOURS THAT DAY, SHE ADMINISTERED 100 UNITS
     Route: 030
  5. ADMELOG [Suspect]
     Active Substance: INSULIN LISPRO
     Dosage: ON THE HOUR AND 5 UNITS ON EVERY HALF HOUR, IN AN ATTEMPT TO GET HER GLUCOSE READING UNDER 200UNK
     Route: 030

REACTIONS (7)
  - Drug ineffective [Recovering/Resolving]
  - Hypotension [Unknown]
  - Postictal state [Unknown]
  - Seizure [Not Recovered/Not Resolved]
  - Asthenia [Unknown]
  - Mental fatigue [Not Recovered/Not Resolved]
  - Hyperglycaemia [Recovering/Resolving]

NARRATIVE: CASE EVENT DATE: 20200926
